FAERS Safety Report 17517118 (Version 1)
Quarter: 2020Q1

REPORT INFORMATION
  Report Type: Spontaneous
  Country: US (occurrence: US)
  Receive Date: 20200228
  Receipt Date: 20200228
  Transmission Date: 20200409
  Serious: Yes (Death)
  Sender: FDA-Public Use
  Company Number: None

PATIENT
  Age: 82 Year
  Sex: Male
  Weight: 70.31 kg

DRUGS (15)
  1. HYDROCHLOROTHIAZIDE. [Concomitant]
     Active Substance: HYDROCHLOROTHIAZIDE
  2. IRON [Concomitant]
     Active Substance: IRON
  3. VITAMIN A [Concomitant]
     Active Substance: VITAMIN A
  4. CREON [Concomitant]
     Active Substance: PANCRELIPASE AMYLASE\PANCRELIPASE LIPASE\PANCRELIPASE PROTEASE
  5. MG 2+ [Concomitant]
  6. ARICEPT [Concomitant]
     Active Substance: DONEPEZIL HYDROCHLORIDE
  7. PLAVIX [Concomitant]
     Active Substance: CLOPIDOGREL BISULFATE
  8. CLONIDINE. [Concomitant]
     Active Substance: CLONIDINE
  9. MONUROL [Concomitant]
     Active Substance: FOSFOMYCIN TROMETHAMINE
  10. ANIDULAFUNGIN [Suspect]
     Active Substance: ANIDULAFUNGIN
     Indication: URINARY TRACT INFECTION
     Dosage: DAILY INFUSION, BUT MY FATHER DIED AFTER FIRST DOSE
     Dates: start: 20200131, end: 20200131
  11. PEPCID [Concomitant]
     Active Substance: FAMOTIDINE
  12. PREDNISONE. [Concomitant]
     Active Substance: PREDNISONE
  13. ZINC. [Concomitant]
     Active Substance: ZINC
  14. TYLENOL [Concomitant]
     Active Substance: ACETAMINOPHEN
  15. PRENATAL VIT [Concomitant]

REACTIONS (1)
  - Respiratory failure [None]

NARRATIVE: CASE EVENT DATE: 20200131
